FAERS Safety Report 24759468 (Version 1)
Quarter: 2024Q4

REPORT INFORMATION
  Report Type: Report from Study
  Country: US (occurrence: US)
  Receive Date: 20241220
  Receipt Date: 20241220
  Transmission Date: 20250114
  Serious: No
  Sender: SUNOVION
  Company Number: US-SUMITOMO PHARMA SWITZERLAND GMBH-2024SPA005798

PATIENT

DRUGS (8)
  1. ORGOVYX [Suspect]
     Active Substance: RELUGOLIX
     Indication: Prostate cancer
     Dosage: 360 MG, SINGLE
     Route: 048
     Dates: start: 20241014, end: 20241014
  2. ORGOVYX [Suspect]
     Active Substance: RELUGOLIX
     Dosage: 120 MG, QD
     Route: 048
     Dates: start: 20241015
  3. CLOBETASOL [Concomitant]
     Active Substance: CLOBETASOL
  4. EPIPEN [Concomitant]
     Active Substance: EPINEPHRINE
  5. HYDROCORTISONE [Concomitant]
     Active Substance: HYDROCORTISONE
  6. KETOCONAZOLE [Concomitant]
     Active Substance: KETOCONAZOLE
  7. METRONIDAZOLE [Concomitant]
     Active Substance: METRONIDAZOLE
  8. SILDENAFIL [Concomitant]
     Active Substance: SILDENAFIL

REACTIONS (1)
  - Hot flush [Unknown]
